FAERS Safety Report 11805913 (Version 3)
Quarter: 2016Q1

REPORT INFORMATION
  Report Type: Spontaneous
  Country: US (occurrence: US)
  Receive Date: 20151207
  Receipt Date: 20160121
  Transmission Date: 20160525
  Serious: Yes (Other)
  Sender: FDA-Public Use
  Company Number: US-BEH-2015056360

PATIENT
  Age: 56 Year
  Sex: Female
  Weight: 108 kg

DRUGS (28)
  1. EPIPEN [Concomitant]
     Active Substance: EPINEPHRINE
  2. VITAMIN D [Concomitant]
     Active Substance: CHOLECALCIFEROL
  3. OMEGA 3 FISH OIL [Concomitant]
     Active Substance: FISH OIL\OMEGA-3 FATTY ACIDS
  4. OCTREOTIDE ACETATE. [Concomitant]
     Active Substance: OCTREOTIDE ACETATE
  5. LAMOTRIGINE. [Concomitant]
     Active Substance: LAMOTRIGINE
  6. SEROQUEL [Concomitant]
     Active Substance: QUETIAPINE FUMARATE
  7. HIZENTRA [Suspect]
     Active Substance: HUMAN IMMUNOGLOBULIN G
     Dosage: STARTED IN FEB-2014
     Route: 058
  8. HIZENTRA [Suspect]
     Active Substance: HUMAN IMMUNOGLOBULIN G
     Dosage: 4 GM 20 ML VIAL
     Route: 058
     Dates: start: 20140219
  9. NASONEX [Concomitant]
     Active Substance: MOMETASONE FUROATE
  10. MULTIVITAMIN-CALCIUM-IRON [Concomitant]
  11. VITAMIN B12 [Concomitant]
     Active Substance: CYANOCOBALAMIN
  12. OMEPRAZOLE. [Concomitant]
     Active Substance: OMEPRAZOLE
  13. CYMBALTA [Concomitant]
     Active Substance: DULOXETINE HYDROCHLORIDE
  14. ACARBOSE. [Concomitant]
     Active Substance: ACARBOSE
  15. NAPROXEN. [Concomitant]
     Active Substance: NAPROXEN
  16. GABAPENTIN. [Concomitant]
     Active Substance: GABAPENTIN
  17. CRANBERRY. [Concomitant]
     Active Substance: CRANBERRY
  18. DIPHENHYDRAMINE. [Concomitant]
     Active Substance: DIPHENHYDRAMINE
  19. CELEBREX [Concomitant]
     Active Substance: CELECOXIB
  20. SIMVASTATIN. [Concomitant]
     Active Substance: SIMVASTATIN
  21. IRON [Concomitant]
     Active Substance: IRON
  22. VANIQA CREAM [Concomitant]
  23. NALTREXONE [Concomitant]
     Active Substance: NALTREXONE
  24. KLOR-CON [Concomitant]
     Active Substance: POTASSIUM CHLORIDE
  25. HIZENTRA [Suspect]
     Active Substance: HUMAN IMMUNOGLOBULIN G
     Indication: IMMUNODEFICIENCY COMMON VARIABLE
     Route: 058
  26. LIDOCAINE. [Concomitant]
     Active Substance: LIDOCAINE
  27. SINGULAIR [Concomitant]
     Active Substance: MONTELUKAST SODIUM
  28. BOTOX [Concomitant]
     Active Substance: ONABOTULINUMTOXINA

REACTIONS (2)
  - Bronchitis [Recovered/Resolved]
  - Pertussis [Recovered/Resolved]

NARRATIVE: CASE EVENT DATE: 20151118
